FAERS Safety Report 8481296-6 (Version None)
Quarter: 2012Q3

REPORT INFORMATION
  Report Type: 
  Country: None (occurrence: None)
  Receive Date: 20120702
  Receipt Date: 20120622
  Transmission Date: 20120928
  Serious: Yes (Other)
  Sender: FDA-Public Use
  Company Number: CA-NOVOPROD-354470

PATIENT
  Age: 66 Year
  Sex: Male
  Weight: 72 kg

DRUGS (9)
  1. ATENOLOL [Concomitant]
  2. MYLAN-OMEPRAZOLE [Concomitant]
     Dosage: 20 MG, QD
  3. OLMESARTAN MEDOXOMIL AND HYDROCHLOROTHIZIDE [Concomitant]
     Dosage: 20 MG, QD
  4. VITAMIN B-12 [Concomitant]
     Dosage: 1000 MG, QD
  5. VICTOZA [Suspect]
     Indication: PRODUCT USED FOR UNKNOWN INDICATION
     Dosage: 1.2 MG, QD
     Route: 065
  6. ATORVASTATIN [Concomitant]
  7. METFORMIN HCL [Concomitant]
     Dosage: 500MG
  8. MYLAN-OMEPRAZOLE [Concomitant]
     Dosage: 20MG
  9. GLYBURIDE [Concomitant]
     Dosage: 30 MG, QD

REACTIONS (4)
  - NAUSEA [None]
  - GASTROINTESTINAL HAEMORRHAGE [None]
  - DIARRHOEA [None]
  - VOMITING [None]
